FAERS Safety Report 6907904 (Version 8)
Quarter: 2015Q3

REPORT INFORMATION
  Report Type: Report from Study
  Country: US (occurrence: US)
  Receive Date: 20071105
  Receipt Date: 20150722
  Transmission Date: 20151125
  Serious: Yes (Hospitalization, Other)
  Sender: FDA-Public Use
  Company Number: US-BIOGENIDEC-2007BI022904

PATIENT
  Age: 47 Year
  Sex: Male
  Weight: 76 kg

DRUGS (13)
  1. PLAVIX [Concomitant]
     Active Substance: CLOPIDOGREL BISULFATE
  2. ZOCOR [Concomitant]
     Active Substance: SIMVASTATIN
  3. TYSABRI [Suspect]
     Active Substance: NATALIZUMAB
     Indication: MULTIPLE SCLEROSIS
     Route: 042
     Dates: start: 20090223, end: 20090424
  4. LASIX [Concomitant]
     Active Substance: FUROSEMIDE
  5. TYSABRI [Suspect]
     Active Substance: NATALIZUMAB
     Indication: MULTIPLE SCLEROSIS
     Route: 042
     Dates: start: 20070822, end: 20070913
  6. PREVACID [Concomitant]
     Active Substance: LANSOPRAZOLE
  7. BACLOFEN. [Concomitant]
     Active Substance: BACLOFEN
  8. OXYCODONE [Concomitant]
     Active Substance: OXYCODONE
  9. CHANTIX [Concomitant]
     Active Substance: VARENICLINE TARTRATE
  10. TOPROL XL [Concomitant]
     Active Substance: METOPROLOL SUCCINATE
  11. LISINOPRIL. [Concomitant]
     Active Substance: LISINOPRIL
  12. LOVENOX [Concomitant]
     Active Substance: ENOXAPARIN SODIUM
     Indication: THROMBOSIS PROPHYLAXIS
  13. DARVOCET [Concomitant]
     Active Substance: ACETAMINOPHEN\PROPOXYPHENE HYDROCHLORIDE

REACTIONS (24)
  - Leukocytosis [Unknown]
  - Renal cyst [Unknown]
  - Pneumonia klebsiella [Recovered/Resolved]
  - Kidney rupture [Recovered/Resolved]
  - Atrial fibrillation [Unknown]
  - Staphylococcal mediastinitis [Recovered/Resolved]
  - Depression [Unknown]
  - Anaemia [Unknown]
  - Electrocardiogram QT prolonged [Unknown]
  - Coronary artery disease [Unknown]
  - Delirium [Unknown]
  - Sepsis [Unknown]
  - Hypotension [Unknown]
  - Chest pain [Unknown]
  - Coma [Recovered/Resolved]
  - Pain in extremity [Not Recovered/Not Resolved]
  - Acute kidney injury [Recovered/Resolved]
  - Wheezing [Unknown]
  - Peripheral artery thrombosis [Unknown]
  - Myocardial infarction [Recovered/Resolved]
  - Muscular weakness [Not Recovered/Not Resolved]
  - Toxic encephalopathy [Unknown]
  - Sleep apnoea syndrome [Unknown]
  - Hypokalaemia [Unknown]

NARRATIVE: CASE EVENT DATE: 2007
